FAERS Safety Report 14618352 (Version 1)
Quarter: 2018Q1

REPORT INFORMATION
  Report Type: Spontaneous
  Country: US (occurrence: US)
  Receive Date: 20180309
  Receipt Date: 20180309
  Transmission Date: 20180509
  Serious: Yes (Other)
  Sender: FDA-Public Use
  Company Number: US-GLAXOSMITHKLINE-US2018039286

PATIENT
  Age: 31 Year
  Sex: Male

DRUGS (3)
  1. BENLYSTA [Suspect]
     Active Substance: BELIMUMAB
     Indication: SYSTEMIC LUPUS ERYTHEMATOSUS
     Dosage: UNK UNK, CYC
     Route: 042
     Dates: start: 201703
  2. BENLYSTA [Suspect]
     Active Substance: BELIMUMAB
     Indication: SYSTEMIC LUPUS ERYTHEMATOSUS
     Dosage: 200 MG, WE
     Route: 058
     Dates: start: 201710
  3. PLAQUENIL [Concomitant]
     Active Substance: HYDROXYCHLOROQUINE SULFATE

REACTIONS (8)
  - Systemic lupus erythematosus [Unknown]
  - Injection site pain [Recovered/Resolved]
  - Fatigue [Recovered/Resolved]
  - Influenza like illness [Recovered/Resolved]
  - Overdose [Unknown]
  - Arthralgia [Recovered/Resolved]
  - Drug effect incomplete [Recovered/Resolved]
  - Wrong technique in device usage process [Unknown]

NARRATIVE: CASE EVENT DATE: 2017
